FAERS Safety Report 4352591-7 (Version None)
Quarter: 2004Q2

REPORT INFORMATION
  Report Type: 
  Country: None (occurrence: None)
  Receive Date: 20040420
  Receipt Date: 20031230
  Transmission Date: 20050107
  Serious: No
  Sender: FDA-Public Use
  Company Number: 2003192299US

PATIENT
  Sex: 0

DRUGS (2)
  1. INSPRA [Suspect]
     Dosage: 25 MG, EVERY OTHER DAY
  2. SYNTHROID [Suspect]

REACTIONS (4)
  - BLOOD PRESSURE INCREASED [None]
  - DRUG INTERACTION [None]
  - HEADACHE [None]
  - PALPITATIONS [None]
